FAERS Safety Report 9108659 (Version 2)
Quarter: 2013Q1

REPORT INFORMATION
  Report Type: Spontaneous
  Country: US (occurrence: US)
  Receive Date: 20130222
  Receipt Date: 20130311
  Transmission Date: 20140127
  Serious: Yes (Other)
  Sender: FDA-Public Use
  Company Number: US-BIOGENIDEC-2013BI017747

PATIENT
  Sex: Female

DRUGS (2)
  1. AVONEX [Suspect]
     Indication: MULTIPLE SCLEROSIS
     Route: 030
     Dates: start: 20010410
  2. AVONEX [Suspect]
     Indication: MULTIPLE SCLEROSIS
     Route: 030
     Dates: start: 200406

REACTIONS (5)
  - Coeliac disease [Not Recovered/Not Resolved]
  - Hypersomnia [Recovered/Resolved]
  - Haemorrhage [Recovered/Resolved]
  - Influenza like illness [Recovered/Resolved]
  - Anaemia [Unknown]
